FAERS Safety Report 24176656 (Version 1)
Quarter: 2024Q3

REPORT INFORMATION
  Report Type: Other
  Country: CN (occurrence: CN)
  Receive Date: 20240806
  Receipt Date: 20240806
  Transmission Date: 20241017
  Serious: Yes (Life-Threatening, Hospitalization, Other)
  Sender: DEXCEL
  Company Number: CN-DEXPHARM-2024-2662

PATIENT
  Age: 1 Year
  Sex: Female

DRUGS (4)
  1. DEXAMETHASONE [Interacting]
     Active Substance: DEXAMETHASONE
     Indication: Infection
  2. CEFTRIAXONE [Suspect]
     Active Substance: CEFTRIAXONE\CEFTRIAXONE SODIUM
     Indication: Infection
  3. VANCOMYCIN [Interacting]
     Active Substance: VANCOMYCIN
     Indication: Infection
  4. LINEZOLID [Concomitant]
     Active Substance: LINEZOLID
     Indication: Infection

REACTIONS (3)
  - Drug ineffective for unapproved indication [Recovering/Resolving]
  - Drug interaction [Recovering/Resolving]
  - Off label use [Recovering/Resolving]
